FAERS Safety Report 24704110 (Version 1)
Quarter: 2024Q4

REPORT INFORMATION
  Report Type: Spontaneous
  Country: US (occurrence: US)
  Receive Date: 20241206
  Receipt Date: 20241206
  Transmission Date: 20250115
  Serious: Yes (Other)
  Sender: MICRO LABS
  Company Number: US-MLMSERVICE-20241119-PI261110-00126-1

PATIENT
  Age: 7 Decade
  Sex: Female

DRUGS (2)
  1. DORZOLAMIDE HYDROCHLORIDE [Suspect]
     Active Substance: DORZOLAMIDE HYDROCHLORIDE
     Indication: Intraocular pressure increased
     Dosage: THE LEFT EYE ONLY
     Route: 061
  2. BRIMONIDINE TARTRATE [Concomitant]
     Active Substance: BRIMONIDINE TARTRATE
     Indication: Ocular hypertension
     Dosage: LONG-STANDING FOR BOTH EYES

REACTIONS (1)
  - Choroidal effusion [Recovered/Resolved]
